FAERS Safety Report 5019375-8 (Version None)
Quarter: 2006Q2

REPORT INFORMATION
  Report Type: 
  Country: None (occurrence: None)
  Receive Date: 20060531
  Receipt Date: 20060522
  Transmission Date: 20061013
  Serious: Yes (Hospitalization)
  Sender: FDA-Public Use
  Company Number: 2006066826

PATIENT
  Age: 77 Year
  Sex: Male
  Weight: 91 kg

DRUGS (3)
  1. SUTENT [Suspect]
     Indication: METASTATIC RENAL CELL CARCINOMA
     Dosage: 50 MG (50 MG 1 IN 1 D) ORAL
     Route: 048
     Dates: start: 20060509, end: 20060521
  2. CIPROFLOXACIN HCL [Concomitant]
  3. SIMVASTATIN [Concomitant]

REACTIONS (1)
  - SYNCOPE [None]
